FAERS Safety Report 23833877 (Version 1)
Quarter: 2024Q2

REPORT INFORMATION
  Report Type: Spontaneous
  Country: US (occurrence: US)
  Receive Date: 20240509
  Receipt Date: 20240509
  Transmission Date: 20240715
  Serious: No
  Sender: FDA-Public Use
  Company Number: US-009507513-2405USA001359

PATIENT

DRUGS (1)
  1. BELSOMRA [Suspect]
     Active Substance: SUVOREXANT
     Dosage: 1 TABLET ONCE A DAY
     Route: 048

REACTIONS (3)
  - Product dose omission issue [Unknown]
  - Product packaging difficult to open [Unknown]
  - No adverse event [Unknown]
